FAERS Safety Report 15397943 (Version 2)
Quarter: 2018Q4

REPORT INFORMATION
  Report Type: Spontaneous
  Country: RU (occurrence: RU)
  Receive Date: 20180918
  Receipt Date: 20181030
  Transmission Date: 20190204
  Serious: Yes (Other)
  Sender: FDA-Public Use
  Company Number: RU-ENDO PHARMACEUTICALS INC-2018-041180

PATIENT
  Age: 42 Year
  Sex: Male

DRUGS (2)
  1. AVEED [Suspect]
     Active Substance: TESTOSTERONE UNDECANOATE
     Indication: KLINEFELTER^S SYNDROME
     Dosage: 250 MG/ML, ONCE
     Route: 030
  2. AVEED [Suspect]
     Active Substance: TESTOSTERONE UNDECANOATE
     Indication: HYPOGONADISM

REACTIONS (10)
  - Blood insulin increased [Unknown]
  - Off label use [Unknown]
  - Transaminases increased [Unknown]
  - Blood testosterone decreased [Recovered/Resolved]
  - Blood glucose increased [Unknown]
  - Polyneuropathy [Unknown]
  - Product quality issue [Unknown]
  - Product supply issue [Unknown]
  - Blood cholesterol increased [Unknown]
  - Inappropriate schedule of product administration [Unknown]

NARRATIVE: CASE EVENT DATE: 2018
